FAERS Safety Report 5823493-1 (Version None)
Quarter: 2008Q3

REPORT INFORMATION
  Report Type: 
  Country: None (occurrence: None)
  Receive Date: 20080725
  Receipt Date: 20080717
  Transmission Date: 20090109
  Serious: Yes (Other)
  Sender: FDA-Public Use
  Company Number: US-PFIZER INC-2008060804

PATIENT
  Sex: Female
  Weight: 77.1 kg

DRUGS (4)
  1. CHANTIX [Suspect]
     Indication: SMOKING CESSATION THERAPY
     Dates: start: 20080602, end: 20080601
  2. SIMVASTATIN [Concomitant]
  3. LAMICTAL [Concomitant]
  4. ANALGESICS [Concomitant]

REACTIONS (3)
  - DEPRESSION [None]
  - SPINAL OPERATION [None]
  - SUICIDAL IDEATION [None]
